FAERS Safety Report 18221592 (Version 1)
Quarter: 2020Q3

REPORT INFORMATION
  Report Type: Spontaneous
  Country: ZA (occurrence: ZA)
  Receive Date: 20200901
  Receipt Date: 20200901
  Transmission Date: 20201103
  Serious: Yes (Disabling)
  Sender: FDA-Public Use
  Company Number: None

PATIENT
  Age: 18 Year
  Sex: Female
  Weight: 57 kg

DRUGS (2)
  1. LEVOFLOXACIN?WINTHROP 500 [Suspect]
     Active Substance: LEVOFLOXACIN
     Indication: COUGH
     Route: 048
     Dates: start: 20191129, end: 20191130
  2. INTEFLORA 250 [Concomitant]
     Dates: start: 20191129, end: 20191130

REACTIONS (12)
  - Depression [None]
  - Heart rate decreased [None]
  - Skin burning sensation [None]
  - Electrocardiogram QT prolonged [None]
  - Joint stiffness [None]
  - Alopecia [None]
  - Insomnia [None]
  - Arthralgia [None]
  - Paraesthesia [None]
  - Anxiety [None]
  - Tendonitis [None]
  - Toxicity to various agents [None]

NARRATIVE: CASE EVENT DATE: 20191129
